FAERS Safety Report 8282570-9 (Version None)
Quarter: 2012Q2

REPORT INFORMATION
  Report Type: 
  Country: None (occurrence: None)
  Receive Date: 20120413
  Receipt Date: 20120402
  Transmission Date: 20120825
  Serious: Yes (Hospitalization)
  Sender: FDA-Public Use
  Company Number: US-SANOFI-AVENTIS-2012SA018603

PATIENT
  Age: 79 Year
  Sex: Male
  Weight: 100 kg

DRUGS (4)
  1. LANTUS [Suspect]
     Dosage: 45 UNITS IN THE AM AND 48 UNITS HS
     Route: 058
  2. SOLOSTAR [Suspect]
  3. SOLOSTAR [Suspect]
  4. LANTUS [Suspect]
     Dosage: 45 UNITS IN THE AM AND 48 UNITS HS
     Route: 058

REACTIONS (1)
  - ASTHENIA [None]
